FAERS Safety Report 9119287 (Version 1)
Quarter: 2013Q1

REPORT INFORMATION
  Report Type: Spontaneous
  Country: FR (occurrence: FR)
  Receive Date: 20130207
  Receipt Date: 20130207
  Transmission Date: 20140127
  Serious: Yes (Congenital Anomaly, Other)
  Sender: FDA-Public Use
  Company Number: FR-ABBOTT-13P-056-1045594-00

PATIENT
  Sex: Male

DRUGS (1)
  1. DEPAKINE CHRONO [Suspect]
     Indication: MATERNAL EXPOSURE TIMING UNSPECIFIED
     Route: 064

REACTIONS (29)
  - Dehydration [Unknown]
  - Weight decreased [Unknown]
  - Renal failure [Unknown]
  - Hyperkalaemia [Unknown]
  - Ventricular septal defect [Unknown]
  - Premature baby [Unknown]
  - Arrhythmia [Unknown]
  - Neonatal respiratory distress syndrome [Unknown]
  - Neonatal respiratory distress syndrome [Unknown]
  - Ventricular septal defect [Unknown]
  - Atrial septal defect [Unknown]
  - Patent ductus arteriosus [Unknown]
  - Coarctation of the aorta [Unknown]
  - Pulmonary arterial hypertension [Unknown]
  - Dysmorphism [Unknown]
  - Congenital nose malformation [Unknown]
  - Anomaly of external ear congenital [Unknown]
  - Foot deformity [Unknown]
  - Ill-defined disorder [Unknown]
  - Hypospadias [Unknown]
  - Prepuce redundant [Unknown]
  - Cardiopulmonary failure [Unknown]
  - Brain malformation [Unknown]
  - Convulsion [Unknown]
  - Dilatation ventricular [Unknown]
  - Pulmonary arterial hypertension [Unknown]
  - Cardio-respiratory arrest [Unknown]
  - Gastrointestinal malformation [Unknown]
  - Foetal exposure during pregnancy [Unknown]
